FAERS Safety Report 24591225 (Version 1)
Quarter: 2024Q4

REPORT INFORMATION
  Report Type: Spontaneous
  Country: US (occurrence: US)
  Receive Date: 20241108
  Receipt Date: 20241108
  Transmission Date: 20250115
  Serious: No
  Sender: ROCHE
  Company Number: US-ROCHE-10000124560

PATIENT
  Sex: Female

DRUGS (8)
  1. XOLAIR PFS [Suspect]
     Active Substance: OMALIZUMAB
     Indication: Idiopathic urticaria
     Route: 058
  2. XOLAIR PFS [Suspect]
     Active Substance: OMALIZUMAB
  3. CLONAZEPAM [Concomitant]
     Active Substance: CLONAZEPAM
  4. HYDROCODONE [Concomitant]
     Active Substance: HYDROCODONE
  5. MOTRIN [Concomitant]
     Active Substance: IBUPROFEN
  6. OMEPRAZOLE [Concomitant]
     Active Substance: OMEPRAZOLE
  7. QUETIAPINE [Concomitant]
     Active Substance: QUETIAPINE
  8. SIMVASTATIN [Concomitant]
     Active Substance: SIMVASTATIN

REACTIONS (2)
  - Drug ineffective [Unknown]
  - No adverse event [Unknown]
